FAERS Safety Report 15586657 (Version 1)
Quarter: 2018Q4

REPORT INFORMATION
  Report Type: Spontaneous
  Country: IT (occurrence: IT)
  Receive Date: 20181105
  Receipt Date: 20181105
  Transmission Date: 20190205
  Serious: Yes (Hospitalization)
  Sender: FDA-Public Use
  Company Number: IT-SANIK-2018SA302336AA

PATIENT
  Age: 87 Year
  Sex: Male

DRUGS (12)
  1. CARDIRENE [Suspect]
     Active Substance: ASPIRIN DL-LYSINE
     Indication: THROMBOSIS PROPHYLAXIS
     Route: 048
     Dates: start: 20180101, end: 20180917
  2. LASIX [Concomitant]
     Active Substance: FUROSEMIDE
  3. UROREC [Concomitant]
     Active Substance: SILODOSIN
  4. PRADAXA [Suspect]
     Active Substance: DABIGATRAN ETEXILATE MESYLATE
     Indication: ATRIAL FIBRILLATION
     Route: 048
     Dates: start: 20180101, end: 20180917
  5. ZYLORIC [Concomitant]
     Active Substance: ALLOPURINOL
  6. LANSOX [Concomitant]
     Active Substance: LANSOPRAZOLE
  7. TRIATEC [LOSARTAN POTASSIUM] [Concomitant]
  8. FOLINA [FOLIC ACID] [Concomitant]
  9. ACETYLSALICYLIC ACID [Suspect]
     Active Substance: ASPIRIN
     Indication: THROMBOSIS PROPHYLAXIS
     Route: 048
     Dates: start: 20180101, end: 20180917
  10. CLOPIDOGREL BISULFATE. [Suspect]
     Active Substance: CLOPIDOGREL BISULFATE
     Indication: ISCHAEMIC HEART DISEASE PROPHYLAXIS
     Route: 048
     Dates: start: 20180101, end: 20180917
  11. AVODART [Concomitant]
     Active Substance: DUTASTERIDE
  12. SIVASTIN [Concomitant]
     Active Substance: SIMVASTATIN

REACTIONS (4)
  - Asthenia [Unknown]
  - Microcytic anaemia [Unknown]
  - Somnolence [Unknown]
  - Vertigo [Unknown]

NARRATIVE: CASE EVENT DATE: 20180915
